FAERS Safety Report 10889369 (Version 1)
Quarter: 2015Q1

REPORT INFORMATION
  Report Type: Spontaneous
  Country: AU (occurrence: AU)
  Receive Date: 20150305
  Receipt Date: 20150305
  Transmission Date: 20150721
  Serious: Yes (Death)
  Sender: FDA-Public Use
  Company Number: AU-PFIZER INC-2015043611

PATIENT
  Age: 51 Year
  Sex: Female

DRUGS (8)
  1. PIROXICAM. [Suspect]
     Active Substance: PIROXICAM
     Dosage: 20 MG, DAILY CAPSULE
     Route: 048
  2. OESTRADIOL [Suspect]
     Active Substance: ESTROGENS
     Dosage: UNK
     Route: 045
  3. PETHIDINE HYDROCHLORIDE [Suspect]
     Active Substance: MEPERIDINE
     Dosage: 100 MG, DAILY
  4. DI-GESIC [Suspect]
     Active Substance: ACETAMINOPHEN\PROPOXYPHENE HYDROCHLORIDE
     Dosage: TABLET
     Route: 048
  5. OXAZEPAM. [Suspect]
     Active Substance: OXAZEPAM
     Dosage: 15 MG, DAILY
     Route: 048
  6. CHOLECALCIFEROL [Suspect]
     Active Substance: CHOLECALCIFEROL
     Dosage: 10000 IU, MONTHLY
     Route: 048
  7. DOXEPIN HCL [Suspect]
     Active Substance: DOXEPIN HYDROCHLORIDE
     Dosage: 25 MG, DAILY
     Route: 048
     Dates: start: 19890417
  8. MAXOLON [Suspect]
     Active Substance: METOCLOPRAMIDE HYDROCHLORIDE
     Dosage: 20 MG, DAILY

REACTIONS (2)
  - Myocardial infarction [Fatal]
  - Arrhythmia [Fatal]

NARRATIVE: CASE EVENT DATE: 19890627
